FAERS Safety Report 5114632-9 (Version None)
Quarter: 2006Q3

REPORT INFORMATION
  Report Type: 
  Country: None (occurrence: None)
  Receive Date: 20060926
  Receipt Date: 20060829
  Transmission Date: 20061208
  Serious: Yes (Disabling)
  Sender: FDA-Public Use
  Company Number: 2006CG01436

PATIENT
  Age: 506 Month
  Sex: Female
  Weight: 80 kg

DRUGS (4)
  1. IRESSA [Suspect]
     Indication: LUNG ADENOCARCINOMA STAGE IV
     Route: 048
     Dates: start: 20040101
  2. CISPLATIN [Concomitant]
     Indication: LUNG ADENOCARCINOMA STAGE IV
     Dosage: 6 COURSES BETWEEN 2001 AND THE END OF 2003
     Dates: start: 20010101, end: 20030101
  3. GEMZAR [Concomitant]
     Indication: LUNG ADENOCARCINOMA STAGE IV
     Dosage: 6 COURSES BETWEEN 2001 AND THE END OF 2003
     Dates: start: 20010101, end: 20030101
  4. TAXOTERE [Concomitant]
     Indication: LUNG ADENOCARCINOMA STAGE IV
     Dosage: 6 COURSES BETWEEN 2001 AND THE END OF 2003
     Dates: start: 20010101, end: 20030101

REACTIONS (1)
  - POLYNEUROPATHY [None]
